FAERS Safety Report 12145229 (Version 1)
Quarter: 2016Q1

REPORT INFORMATION
  Report Type: Spontaneous
  Country: US (occurrence: US)
  Receive Date: 20160304
  Receipt Date: 20160304
  Transmission Date: 20160526
  Serious: Yes (Other)
  Sender: FDA-Public Use
  Company Number: PHHY2016US027277

PATIENT
  Age: 48 Year
  Sex: Female

DRUGS (1)
  1. NILOTINIB [Suspect]
     Active Substance: NILOTINIB
     Indication: MYELOID LEUKAEMIA
     Route: 065

REACTIONS (12)
  - Cerebrovascular accident [Unknown]
  - Muscular weakness [Unknown]
  - Dysarthria [Unknown]
  - Blast crisis in myelogenous leukaemia [Unknown]
  - Intracranial mass [Unknown]
  - Nausea [Unknown]
  - Vomiting [Unknown]
  - Central nervous system lesion [Unknown]
  - Mental status changes [Unknown]
  - Somnolence [Unknown]
  - Haemorrhage [Unknown]
  - Facial paralysis [Unknown]
